FAERS Safety Report 9034341 (Version 2)
Quarter: 2016Q2

REPORT INFORMATION
  Report Type: Report from Study
  Country: US (occurrence: US)
  Receive Date: 20130128
  Receipt Date: 20160401
  Transmission Date: 20160815
  Serious: Yes (Other)
  Sender: FDA-Public Use
  Company Number: US-AMGEN-USASP2012071197

PATIENT
  Age: 62 Year
  Sex: Female
  Weight: 111.1 kg

DRUGS (12)
  1. METHOTREXATE [Concomitant]
     Active Substance: METHOTREXATE
     Dosage: 2.5 MG, UNK
     Route: 048
  2. POTASSIUM [Concomitant]
     Active Substance: POTASSIUM
     Dosage: UNK
     Route: 048
  3. FISH OIL [Concomitant]
     Active Substance: FISH OIL
     Dosage: UNK
     Route: 048
  4. MORTIN [Concomitant]
     Active Substance: SULFAMETHOXAZOLE\TRIMETHOPRIM
     Dosage: 800 MG, UNK
     Route: 048
  5. LIPITOR [Concomitant]
     Active Substance: ATORVASTATIN CALCIUM
     Dosage: 10 MG, UNK
     Route: 048
  6. PROVENTIL [Concomitant]
     Active Substance: ALBUTEROL
     Dosage: 90 MUG, UNK
  7. PREDNISONE. [Concomitant]
     Active Substance: PREDNISONE
     Dosage: 10 MG, UNK
     Route: 048
  8. ENBREL [Suspect]
     Active Substance: ETANERCEPT
     Indication: RHEUMATOID ARTHRITIS
     Dosage: 50 MG, ADMINISTER 1 INJECTION WEEKLY
     Route: 058
  9. FOLIC ACID. [Concomitant]
     Active Substance: FOLIC ACID
     Dosage: UNK,
     Route: 048
  10. ZETIA [Concomitant]
     Active Substance: EZETIMIBE
     Dosage: 10 MG, UNK
     Route: 048
  11. AMLODIPINE [Concomitant]
     Active Substance: AMLODIPINE BESYLATE
     Dosage: 10 MG, UNK
     Route: 048
  12. BENAZEPRIL [Concomitant]
     Active Substance: BENAZEPRIL HYDROCHLORIDE
     Dosage: 10 MG, UNK
     Route: 048

REACTIONS (2)
  - Upper respiratory tract infection [Unknown]
  - Asthma [Unknown]

NARRATIVE: CASE EVENT DATE: 20121001
